FAERS Safety Report 14755644 (Version 2)
Quarter: 2018Q2

REPORT INFORMATION
  Report Type: Report from Study
  Country: US (occurrence: US)
  Receive Date: 20180413
  Receipt Date: 20180502
  Transmission Date: 20180711
  Serious: Yes (Hospitalization, Other)
  Sender: FDA-Public Use
  Company Number: US-ROCHE-2043126

PATIENT
  Age: 84 Year
  Sex: Male
  Weight: 89.89 kg

DRUGS (2)
  1. ESBRIET [Suspect]
     Active Substance: PIRFENIDONE
     Indication: IDIOPATHIC PULMONARY FIBROSIS
     Dosage: WITH MEALS
     Route: 048
  2. OXYGEN (NIGHT) [Concomitant]
     Route: 065
     Dates: start: 201803

REACTIONS (16)
  - Dyspnoea [Unknown]
  - Eye haemorrhage [Unknown]
  - Accident [Unknown]
  - Tooth loss [Not Recovered/Not Resolved]
  - Visual impairment [Not Recovered/Not Resolved]
  - Decreased appetite [Unknown]
  - Syncope [Unknown]
  - Fall [Unknown]
  - Visual field defect [Not Recovered/Not Resolved]
  - Loss of consciousness [Unknown]
  - Weight decreased [Not Recovered/Not Resolved]
  - Eye injury [Unknown]
  - Heart rate decreased [Recovered/Resolved]
  - Corneal disorder [Recovered/Resolved]
  - Heart rate decreased [Recovering/Resolving]
  - Dyspnoea [Not Recovered/Not Resolved]

NARRATIVE: CASE EVENT DATE: 2017
